FAERS Safety Report 13389522 (Version 1)
Quarter: 2017Q1

REPORT INFORMATION
  Report Type: Spontaneous
  Country: US (occurrence: US)
  Receive Date: 20170331
  Receipt Date: 20170331
  Transmission Date: 20170429
  Serious: No
  Sender: FDA-Public Use
  Company Number: US-CELGENEUS-USA-2017038742

PATIENT
  Sex: Male
  Weight: 65.83 kg

DRUGS (3)
  1. POMALYST [Suspect]
     Active Substance: POMALIDOMIDE
     Dosage: 2 MILLIGRAM
     Route: 048
     Dates: start: 201702
  2. POMALYST [Suspect]
     Active Substance: POMALIDOMIDE
     Indication: PLASMA CELL MYELOMA
     Dosage: 2 MILLIGRAM
     Route: 048
     Dates: start: 20160810
  3. POMALYST [Suspect]
     Active Substance: POMALIDOMIDE
     Dosage: 4-2 MG
     Route: 048
     Dates: start: 201608

REACTIONS (1)
  - Adverse event [Unknown]
